FAERS Safety Report 4894756-1 (Version None)
Quarter: 2006Q1

REPORT INFORMATION
  Report Type: 
  Country: None (occurrence: None)
  Receive Date: 20060126
  Receipt Date: 20060126
  Transmission Date: 20060701
  Serious: Yes (Hospitalization)
  Sender: FDA-Public Use
  Company Number: None

PATIENT
  Age: 56 Year
  Sex: Female
  Weight: 58.9676 kg

DRUGS (1)
  1. KETEK [Suspect]
     Indication: UPPER RESPIRATORY TRACT INFECTION
     Dosage: 800MG  DAILY  PO
     Route: 048
     Dates: start: 20051201, end: 20051201

REACTIONS (2)
  - ABDOMINAL PAIN [None]
  - HEPATOTOXICITY [None]
